FAERS Safety Report 5003301-1 (Version None)
Quarter: 2006Q2

REPORT INFORMATION
  Report Type: 
  Country: None (occurrence: None)
  Receive Date: 20060512
  Receipt Date: 20060427
  Transmission Date: 20061013
  Serious: Yes (Death, Life-Threatening, Hospitalization, Disabling, Other)
  Sender: FDA-Public Use
  Company Number: T200600414

PATIENT
  Age: 21 Month
  Sex: Male

DRUGS (2)
  1. OPTIRAY 350 [Suspect]
     Indication: ANGIOPLASTY
     Dosage: 11.2 ML/KG, INTRAVASCULAR
     Route: 050
     Dates: start: 20030418, end: 20030418
  2. PROPOFOL [Suspect]
     Indication: SEDATION
     Dosage: INTRAVENOUS
     Route: 042
     Dates: start: 20030422

REACTIONS (20)
  - ABASIA [None]
  - ANOXIA [None]
  - APHASIA [None]
  - BLOOD BRAIN BARRIER DEFECT [None]
  - BRADYCARDIA [None]
  - BRAIN DAMAGE [None]
  - CARDIAC FAILURE ACUTE [None]
  - CARDIAC PROCEDURE COMPLICATION [None]
  - CARDIO-RESPIRATORY ARREST [None]
  - CARDIOMEGALY [None]
  - COMMUNICATION DISORDER [None]
  - CONVULSION [None]
  - DEVICE FAILURE [None]
  - DISCOMFORT [None]
  - FOREIGN BODY TRAUMA [None]
  - IATROGENIC INJURY [None]
  - OVERDOSE [None]
  - PAIN [None]
  - PYREXIA [None]
  - TRAUMATIC BRAIN INJURY [None]
